FAERS Safety Report 8328752-9 (Version None)
Quarter: 2012Q2

REPORT INFORMATION
  Report Type: 
  Country: None (occurrence: None)
  Receive Date: 20120502
  Receipt Date: 20120423
  Transmission Date: 20120825
  Serious: Yes (Hospitalization)
  Sender: FDA-Public Use
  Company Number: US-US-EMD SERONO, INC.-7128233

PATIENT
  Sex: Male

DRUGS (2)
  1. HYDROCHLOROTHIAZIDE [Concomitant]
     Indication: HYPERTENSION
     Dates: start: 20010101
  2. REBIF [Suspect]
     Indication: MULTIPLE SCLEROSIS
     Route: 058
     Dates: start: 20050830

REACTIONS (12)
  - BLOOD POTASSIUM DECREASED [None]
  - NECK PAIN [None]
  - MUSCULAR WEAKNESS [None]
  - INJECTION SITE REACTION [None]
  - INTERVERTEBRAL DISC DEGENERATION [None]
  - INJECTION SITE ABSCESS [None]
  - INJECTION SITE CELLULITIS [None]
  - BURNING SENSATION [None]
  - BLOOD PHOSPHORUS DECREASED [None]
  - VERTIGO [None]
  - PARAESTHESIA [None]
  - INTERVERTEBRAL DISC PROTRUSION [None]
